FAERS Safety Report 17406182 (Version 2)
Quarter: 2020Q2

REPORT INFORMATION
  Report Type: Spontaneous
  Country: SK (occurrence: SK)
  Receive Date: 20200212
  Receipt Date: 20200416
  Transmission Date: 20200713
  Serious: Yes (Life-Threatening, Hospitalization)
  Sender: FDA-Public Use
  Company Number: SK-ROCHE-2547496

PATIENT
  Age: 65 Year
  Sex: Female

DRUGS (1)
  1. ACTILYSE [Suspect]
     Active Substance: ALTEPLASE
     Indication: CEREBROVASCULAR ACCIDENT
     Dosage: (1 IN 1 ONCE)
     Route: 042
     Dates: start: 20181220, end: 20181220

REACTIONS (1)
  - NIH stroke scale abnormal [Recovered/Resolved]

NARRATIVE: CASE EVENT DATE: 20181220
